FAERS Safety Report 7270033-9 (Version None)
Quarter: 2011Q1

REPORT INFORMATION
  Report Type: 
  Country: None (occurrence: None)
  Receive Date: 20110202
  Receipt Date: 20110121
  Transmission Date: 20110831
  Serious: Yes (Other)
  Sender: FDA-Public Use
  Company Number: GB-ROCHE-755006

PATIENT

DRUGS (1)
  1. ISOTRETINOIN [Suspect]
     Route: 065
     Dates: start: 20101021

REACTIONS (1)
  - ACCIDENT [None]
